FAERS Safety Report 5255367-1 (Version None)
Quarter: 2007Q1

REPORT INFORMATION
  Report Type: 
  Country: None (occurrence: None)
  Receive Date: 20070228
  Receipt Date: 20070212
  Transmission Date: 20070707
  Serious: Yes (Hospitalization)
  Sender: FDA-Public Use
  Company Number: 3630

PATIENT
  Age: 52 Year
  Sex: Male
  Weight: 86 kg

DRUGS (1)
  1. AMNESTEEM [Suspect]
     Indication: SEBACEOUS HYPERPLASIA
     Dosage: 40 MG, QD, PO
     Route: 048
     Dates: start: 20060726, end: 20061027

REACTIONS (1)
  - MYOCARDIAL INFARCTION [None]
